FAERS Safety Report 16872554 (Version 3)
Quarter: 2020Q2

REPORT INFORMATION
  Report Type: Spontaneous
  Country: US (occurrence: US)
  Receive Date: 20191001
  Receipt Date: 20200424
  Transmission Date: 20200713
  Serious: Yes (Other)
  Sender: FDA-Public Use
  Company Number: US-GILEAD-2019-0430950

PATIENT
  Age: 55 Year
  Sex: Male
  Weight: 77.1 kg

DRUGS (38)
  1. ISENTRESS [Concomitant]
     Active Substance: RALTEGRAVIR POTASSIUM
  2. FAMOTIDINE. [Concomitant]
     Active Substance: FAMOTIDINE
  3. ZYRTEC [Concomitant]
     Active Substance: CETIRIZINE HYDROCHLORIDE
  4. IBUPROFEN. [Concomitant]
     Active Substance: IBUPROFEN
  5. STROVITE ONE [Concomitant]
     Active Substance: MINERALS\VITAMINS
  6. VALIUM [Concomitant]
     Active Substance: DIAZEPAM
  7. INFLUENZA VACCINE [Concomitant]
     Active Substance: INFLUENZA VIRUS VACCINE
  8. PNEUMOCOCCAL VACCINE 13V [Concomitant]
  9. RANITIDINE. [Concomitant]
     Active Substance: RANITIDINE
  10. REYATAZ [Concomitant]
     Active Substance: ATAZANAVIR SULFATE
  11. PROAIR [FLUTICASONE PROPIONATE] [Concomitant]
     Active Substance: FLUTICASONE PROPIONATE
  12. HEPATITIS B VACCINE [Concomitant]
     Active Substance: HEPATITIS B VIRUS VACCINE
  13. TRUVADA [Suspect]
     Active Substance: EMTRICITABINE\TENOFOVIR DISOPROXIL FUMARATE
     Indication: HIV INFECTION
     Dosage: UNK
     Route: 048
     Dates: start: 20090527, end: 20130415
  14. TRAMADOL. [Concomitant]
     Active Substance: TRAMADOL
  15. MULTIVITAMINUM [Concomitant]
     Active Substance: VITAMINS
  16. AZITHROMYCIN ANHYDROUS. [Concomitant]
     Active Substance: AZITHROMYCIN ANHYDROUS
  17. DOXYCYCLINE HYCLATE. [Concomitant]
     Active Substance: DOXYCYCLINE HYCLATE
  18. REMERON [Concomitant]
     Active Substance: MIRTAZAPINE
  19. TIVICAY [Concomitant]
     Active Substance: DOLUTEGRAVIR SODIUM
  20. ALBUTEROL SULFATE. [Concomitant]
     Active Substance: ALBUTEROL SULFATE
  21. FLONASE [Concomitant]
     Active Substance: FLUTICASONE PROPIONATE
  22. XANAX [Concomitant]
     Active Substance: ALPRAZOLAM
  23. PREZISTA [Concomitant]
     Active Substance: DARUNAVIR ETHANOLATE
  24. TEMAZEPAM. [Concomitant]
     Active Substance: TEMAZEPAM
  25. NORVIR [Concomitant]
     Active Substance: RITONAVIR
  26. CLARINEX [LORATADINE;PSEUDOEPHEDRINE SULFATE] [Concomitant]
  27. CRESTOR [Concomitant]
     Active Substance: ROSUVASTATIN CALCIUM
  28. VITA S [Concomitant]
  29. LAC-HYDRIN [Concomitant]
     Active Substance: AMMONIUM LACTATE
  30. AMOXICILLIN. [Concomitant]
     Active Substance: AMOXICILLIN
  31. VITAMIN D3 [Concomitant]
     Active Substance: CHOLECALCIFEROL
  32. TRUVADA [Suspect]
     Active Substance: EMTRICITABINE\TENOFOVIR DISOPROXIL FUMARATE
     Dosage: UNK
     Route: 065
     Dates: start: 2005, end: 2015
  33. DESCOVY [Concomitant]
     Active Substance: EMTRICITABINE\TENOFOVIR ALAFENAMIDE FUMARATE
  34. LORATADINE. [Concomitant]
     Active Substance: LORATADINE
  35. NASONEX [Concomitant]
     Active Substance: MOMETASONE FUROATE
  36. VIAGRA [Concomitant]
     Active Substance: SILDENAFIL CITRATE
  37. NICODERM CQ [Concomitant]
     Active Substance: NICOTINE
  38. FLOMAX [Concomitant]
     Active Substance: TAMSULOSIN HYDROCHLORIDE

REACTIONS (9)
  - Pain [Unknown]
  - Tooth loss [Unknown]
  - Renal failure [Recovered/Resolved]
  - Anxiety [Unknown]
  - Anhedonia [Unknown]
  - Emotional distress [Unknown]
  - Economic problem [Unknown]
  - Vitamin D deficiency [Not Recovered/Not Resolved]
  - Bone density decreased [Unknown]

NARRATIVE: CASE EVENT DATE: 201801
